FAERS Safety Report 7482275-8 (Version None)
Quarter: 2011Q2

REPORT INFORMATION
  Report Type: 
  Country: None (occurrence: None)
  Receive Date: 20110516
  Receipt Date: 20110506
  Transmission Date: 20111010
  Serious: No
  Sender: FDA-Public Use
  Company Number: US-PFIZER INC-2011084598

PATIENT
  Age: 48 Year
  Sex: Female
  Weight: 97.7 kg

DRUGS (2)
  1. GEODON [Suspect]
     Dosage: UNK
  2. SAPHRIS [Suspect]
     Dosage: UNK

REACTIONS (1)
  - SEDATION [None]
